FAERS Safety Report 5955850-7 (Version None)
Quarter: 2008Q4

REPORT INFORMATION
  Report Type: 
  Country: None (occurrence: None)
  Receive Date: 20081117
  Receipt Date: 20081105
  Transmission Date: 20090506
  Serious: Yes (Other)
  Sender: FDA-Public Use
  Company Number: JP-PFIZER INC-2008095506

PATIENT
  Age: 29 Year
  Sex: Female

DRUGS (18)
  1. SERTRALINE [Suspect]
     Indication: DEPRESSION
     Dosage: DAILY DOSE:50MG
  2. SERTRALINE [Suspect]
     Dosage: DAILY DOSE:100MG
  3. PREDNISOLONE [Suspect]
     Indication: TAKAYASU'S ARTERITIS
  4. BROTIZOLAM [Suspect]
     Indication: DEPRESSION
     Dosage: DAILY DOSE:.25MG
  5. PAROXETINE HCL [Suspect]
     Indication: DEPRESSION
     Dosage: DAILY DOSE:20MG
  6. PAROXETINE HCL [Suspect]
     Indication: INSOMNIA
     Dosage: DAILY DOSE:30MG
  7. PAROXETINE HCL [Suspect]
     Dosage: DAILY DOSE:40MG
  8. MIANSERIN [Suspect]
     Indication: DEPRESSION
     Dosage: DAILY DOSE:10MG
  9. MIANSERIN [Suspect]
     Indication: INSOMNIA
     Dosage: DAILY DOSE:20MG
  10. ARIPIPRAZOLE [Suspect]
     Indication: DEPRESSION
     Dosage: DAILY DOSE:3MG
  11. ARIPIPRAZOLE [Suspect]
     Indication: INSOMNIA
     Dosage: DAILY DOSE:6MG
  12. FLUNITRAZEPAM [Suspect]
     Indication: DEPRESSION
     Dosage: DAILY DOSE:4MG
  13. CYCLOSPORINE [Suspect]
     Indication: TAKAYASU'S ARTERITIS
     Dosage: DAILY DOSE:100MG
  14. ACETYLSALICYLIC ACID SRT [Concomitant]
     Indication: TAKAYASU'S ARTERITIS
  15. WARFARIN SODIUM [Concomitant]
     Indication: TAKAYASU'S ARTERITIS
     Dosage: DAILY DOSE:2.5MG
  16. BERAPROST [Concomitant]
     Indication: TAKAYASU'S ARTERITIS
     Dosage: DAILY DOSE:60MG
  17. ALENDRONATE SODIUM [Concomitant]
     Indication: TAKAYASU'S ARTERITIS
     Dosage: DAILY DOSE:5MG
  18. FAMOTIDINE [Concomitant]
     Indication: TAKAYASU'S ARTERITIS
     Dosage: DAILY DOSE:20MG

REACTIONS (2)
  - HYPERPHAGIA [None]
  - WEIGHT FLUCTUATION [None]
